FAERS Safety Report 25595717 (Version 1)
Quarter: 2025Q3

REPORT INFORMATION
  Report Type: Spontaneous
  Country: US (occurrence: US)
  Receive Date: 20250723
  Receipt Date: 20250723
  Transmission Date: 20251020
  Serious: Yes (Death, Life-Threatening, Other)
  Sender: VELOXIS PHARMACEUTICALS
  Company Number: US-MLMSERVICE-20250710-PI575389-00306-1

PATIENT
  Age: 69 Year
  Sex: Male

DRUGS (1)
  1. TACROLIMUS [Suspect]
     Active Substance: TACROLIMUS
     Indication: Immunosuppressant drug therapy

REACTIONS (6)
  - Pulmonary alveolar haemorrhage [Fatal]
  - Shock [Fatal]
  - Respiratory failure [Fatal]
  - Renal failure [Fatal]
  - Kaposi^s sarcoma [Fatal]
  - Human herpesvirus 8 infection [Fatal]
